FAERS Safety Report 25926477 (Version 3)
Quarter: 2025Q4

REPORT INFORMATION
  Report Type: Spontaneous
  Country: US (occurrence: US)
  Receive Date: 20251015
  Receipt Date: 20251117
  Transmission Date: 20260118
  Serious: No
  Sender: PFIZER
  Company Number: US-PFIZER INC-202500051543

PATIENT
  Age: 13 Year
  Sex: Female

DRUGS (3)
  1. GENOTROPIN [Suspect]
     Active Substance: SOMATROPIN
     Indication: Short stature
     Dosage: 1.5 MG, DAILY
  2. GENOTROPIN [Suspect]
     Active Substance: SOMATROPIN
     Dosage: 1.4 MG, ALTERNATE DAY, ALTERNATE BETWEEN 1.4 MG + 1.6 MG EVERY OTHER DAY FOR AVERAGE DAILY OF 1.5 MG
  3. GENOTROPIN [Suspect]
     Active Substance: SOMATROPIN
     Dosage: 1.6 MG, ALTERNATE DAY, ALTERNATE BETWEEN 1.4 MG + 1.6 MG EVERY OTHER DAY FOR AVERAGE DAILY OF 1.5 MG

REACTIONS (2)
  - Device issue [Unknown]
  - Device malfunction [Unknown]
